FAERS Safety Report 4974415-7 (Version None)
Quarter: 2006Q2

REPORT INFORMATION
  Report Type: 
  Country: None (occurrence: None)
  Receive Date: 20060410
  Receipt Date: 20050327
  Transmission Date: 20061013
  Serious: Yes (Other)
  Sender: FDA-Public Use
  Company Number: HQWYE537327MAR06

PATIENT
  Age: 34 Year
  Sex: Female

DRUGS (1)
  1. NEOVLAR [Suspect]
     Dosage: 1 TABLET 1X PER 1 DAY
     Route: 048

REACTIONS (5)
  - ABDOMINAL PAIN UPPER [None]
  - ABORTION SPONTANEOUS [None]
  - DRUG EXPOSURE BEFORE PREGNANCY [None]
  - IRRITABILITY [None]
  - PREGNANCY [None]
